FAERS Safety Report 9293134 (Version 1)
Quarter: 2013Q2

REPORT INFORMATION
  Report Type: Spontaneous
  Country: TN (occurrence: None)
  Receive Date: 20130514
  Receipt Date: 20130514
  Transmission Date: 20140414
  Serious: Yes (Death)
  Sender: FDA-Public Use
  Company Number: KAD201305-000514

PATIENT
  Age: 61 Year
  Sex: Male

DRUGS (2)
  1. AMPHOTERICIN B [Suspect]
     Indication: ZYGOMYCOSIS
     Dosage: (CUMULATIVE DOSE, 1.7 G)
     Route: 042
  2. INSULIN (INSULIN) [Concomitant]

REACTIONS (3)
  - Ventricular arrhythmia [None]
  - Hyperkalaemia [None]
  - Off label use [None]
